FAERS Safety Report 11077225 (Version 1)
Quarter: 2015Q2

REPORT INFORMATION
  Report Type: Spontaneous
  Country: IN (occurrence: IN)
  Receive Date: 20150429
  Receipt Date: 20150429
  Transmission Date: 20150821
  Serious: Yes (Other)
  Sender: FDA-Public Use
  Company Number: ALCN2015IN002781

PATIENT
  Age: 25 Year
  Sex: Female

DRUGS (3)
  1. DEXAMETHASONE SODIUM SULFATE [Concomitant]
     Active Substance: DEXAMETHASONE SODIUM SULFATE
     Indication: POSTOPERATIVE CARE
     Dosage: 1 GTT, QID
     Route: 047
  2. VIGAMOX [Suspect]
     Active Substance: MOXIFLOXACIN HYDROCHLORIDE
     Indication: OFF LABEL USE
     Dosage: 1 GTT, QID
     Route: 047
  3. VIGAMOX [Suspect]
     Active Substance: MOXIFLOXACIN HYDROCHLORIDE
     Indication: POSTOPERATIVE CARE
     Dosage: 1 GTT, TID
     Route: 047

REACTIONS (11)
  - Corneal deposits [Recovered/Resolved]
  - Corneal flap complication [Recovered/Resolved]
  - Corneal epithelium defect [Recovered/Resolved]
  - Corneal oedema [Recovered/Resolved]
  - Vision blurred [Recovered/Resolved]
  - Ocular hyperaemia [Recovered/Resolved]
  - Eye pain [Recovered/Resolved]
  - Incorrect drug administration duration [Recovered/Resolved]
  - Hypopyon [Recovered/Resolved]
  - Corneal infiltrates [Recovered/Resolved]
  - Visual acuity reduced [Recovered/Resolved]
